FAERS Safety Report 5771506-8 (Version None)
Quarter: 2008Q2

REPORT INFORMATION
  Report Type: 
  Country: None (occurrence: None)
  Receive Date: 20080611
  Receipt Date: 20080530
  Transmission Date: 20081010
  Serious: Yes (Hospitalization, Other)
  Sender: FDA-Public Use
  Company Number: 2008SI009263

PATIENT
  Age: 66 Year
  Sex: Male
  Weight: 77 kg

DRUGS (8)
  1. SUNITINIB MALATE (SUNITINIB MALATE) [Suspect]
     Indication: METASTATIC RENAL CELL CARCINOMA
     Dosage: 50 MG; ORAL
     Route: 048
     Dates: start: 20070116
  2. METHYLDOPA [Suspect]
     Dosage: ORAL
     Dates: start: 19960101, end: 20070713
  3. METFORMIN [Concomitant]
  4. GLICLAZIDE [Concomitant]
  5. ATACAND [Concomitant]
  6. FLUCONAZOLE [Concomitant]
  7. CIPROFLOXACIN HCL [Concomitant]
  8. PANTOPRAZOLE SODIUM [Concomitant]

REACTIONS (6)
  - ANAEMIA [None]
  - FALL [None]
  - FATIGUE [None]
  - SKIN LACERATION [None]
  - SOFT TISSUE INJURY [None]
  - VOMITING [None]
